FAERS Safety Report 5518812-X (Version None)
Quarter: 2007Q4

REPORT INFORMATION
  Report Type: 
  Country: None (occurrence: None)
  Receive Date: 20071115
  Receipt Date: 20071106
  Transmission Date: 20080405
  Serious: Yes (Hospitalization)
  Sender: FDA-Public Use
  Company Number: JP-MERCK-0710USA05743

PATIENT
  Age: 55 Year
  Sex: Male

DRUGS (4)
  1. PEPCID RPD [Suspect]
     Route: 048
     Dates: start: 20071011, end: 20071016
  2. LOXONIN [Concomitant]
     Route: 048
  3. OMEPRAL [Concomitant]
     Route: 048
     Dates: start: 20071016
  4. PHENYTOIN SODIUM CAP [Suspect]
     Route: 048

REACTIONS (1)
  - NEPHRITIS INTERSTITIAL [None]
